FAERS Safety Report 8789215 (Version 1)
Quarter: 2012Q4

REPORT INFORMATION
  Report Type: Spontaneous
  Country: None (occurrence: None)
  Receive Date: 20120905
  Receipt Date: 20120905
  Transmission Date: 20130627
  Serious: Yes (Other)
  Sender: FDA-Public Use
  Company Number: AUR-APL-2012-03760

PATIENT
  Age: 69 Year
  Sex: Male

DRUGS (12)
  1. METFORMIN (METFORMIN) [Suspect]
     Indication: TYPE 2 DIABETES MELLITUS
     Route: 048
     Dates: start: 20120113, end: 20120516
  2. TAHOR [Suspect]
     Indication: DRUG USE FOR UNKNOWN INDICATION
     Route: 048
  3. EUCREAS [Suspect]
     Indication: DIABETES MELLITUS
     Route: 048
     Dates: end: 20120113
  4. ENANTONE (LEUPRORELIN) [Concomitant]
  5. TAXOTERE (DOCETAXEL) [Concomitant]
  6. FUROSEMIDE (FUROSEMIDE) [Concomitant]
  7. CARDENSIEL (BISOPROLOL FUMARATE) [Concomitant]
  8. COVERSYL (PERINDOPRIL) [Concomitant]
  9. AERIUS (DESLORATADINE) [Concomitant]
  10. ALDACTONE (SPIRONOLACTONE) [Concomitant]
  11. PLAVIX (CLOPIDOGREL) [Concomitant]
  12. XATRAL (ALFUZOSIN) [Concomitant]

REACTIONS (3)
  - Medication residue [None]
  - Abdominal pain [None]
  - Blood glucose fluctuation [None]
